FAERS Safety Report 10911520 (Version 7)
Quarter: 2018Q3

REPORT INFORMATION
  Report Type: Spontaneous
  Country: KR (occurrence: KR)
  Receive Date: 20150313
  Receipt Date: 20180817
  Transmission Date: 20181010
  Serious: Yes (Other)
  Sender: FDA-Public Use
  Company Number: KR-009507513-1503KOR001687

PATIENT
  Age: 47 Year
  Sex: Female
  Weight: 62 kg

DRUGS (14)
  1. ZENOCEF (CEFAZEDONE SODIUM) [Concomitant]
     Indication: INFECTION PROPHYLAXIS
     Dosage: 1 G, BID
     Route: 042
     Dates: start: 20150225, end: 20150226
  2. DENOGAN [Concomitant]
     Active Substance: PROPACETAMOL HYDROCHLORIDE
     Indication: PAIN PROPHYLAXIS
     Dosage: 2 G, QD
     Route: 008
     Dates: start: 20150225, end: 20150225
  3. BALUNA S [Concomitant]
     Indication: PAIN PROPHYLAXIS
     Dosage: 1 TABLET, QD
     Route: 048
     Dates: start: 20150223, end: 20150223
  4. HALCION [Concomitant]
     Active Substance: TRIAZOLAM
     Indication: PROPHYLAXIS
     Dosage: 0.25 MG, QD
     Route: 048
     Dates: start: 20150225, end: 20150225
  5. FENTANYL CITRATE. [Concomitant]
     Active Substance: FENTANYL CITRATE
     Indication: PAIN PROPHYLAXIS
     Dosage: 100 MICROGRAM, QD
     Route: 008
     Dates: start: 20150225, end: 20150225
  6. ROCURONIUM BROMIDE. [Suspect]
     Active Substance: ROCURONIUM BROMIDE
     Dosage: 90 MG, ONCE
     Route: 041
     Dates: start: 20150225, end: 20150225
  7. ALOXI [Concomitant]
     Active Substance: PALONOSETRON HYDROCHLORIDE
     Indication: PROPHYLAXIS OF NAUSEA AND VOMITING
     Dosage: 75 MICROGRAM, QD
     Route: 042
     Dates: start: 20150225, end: 20150225
  8. ALOXI [Concomitant]
     Active Substance: PALONOSETRON HYDROCHLORIDE
     Dosage: 75 MICROGRAM, QD
     Route: 041
     Dates: start: 20150225, end: 20150227
  9. AMBROXOL HYDROCHLORIDE [Concomitant]
     Active Substance: AMBROXOL HYDROCHLORIDE
     Indication: PROPHYLAXIS
     Dosage: 15 MG, BID
     Route: 042
     Dates: start: 20150225, end: 20150226
  10. DENOGAN [Concomitant]
     Active Substance: PROPACETAMOL HYDROCHLORIDE
     Dosage: 8 G, QD
     Route: 041
     Dates: start: 20150225, end: 20150227
  11. COLYTE [Concomitant]
     Active Substance: POLYETHYLENE GLYCOL 3350\POTASSIUM CHLORIDE\SODIUM BICARBONATE\SODIUM CHLORIDE\SODIUM SULFATE ANHYDROUS
     Indication: COLONIC LAVAGE
     Dosage: 274.31 G, QD
     Route: 048
     Dates: start: 20150224, end: 20150224
  12. BRIDION [Suspect]
     Active Substance: SUGAMMADEX
     Indication: NEUROMUSCULAR BLOCKADE REVERSAL
     Dosage: 124 MG (2MG/KG), ONCE
     Route: 042
     Dates: start: 20150225, end: 20150225
  13. ROCURONIUM BROMIDE. [Suspect]
     Active Substance: ROCURONIUM BROMIDE
     Indication: MUSCLE RELAXANT THERAPY
     Dosage: 50 MG, ONCE
     Route: 042
     Dates: start: 20150225, end: 20150225
  14. FENTANYL CITRATE. [Concomitant]
     Active Substance: FENTANYL CITRATE
     Dosage: 1000 MICROGRAM, QD
     Route: 041
     Dates: start: 20150225, end: 20150227

REACTIONS (4)
  - Hypertensive crisis [Recovered/Resolved]
  - Hot flush [Recovered/Resolved]
  - Nausea [Recovered/Resolved]
  - Pain [Recovered/Resolved]

NARRATIVE: CASE EVENT DATE: 20150225
